FAERS Safety Report 6537901-4 (Version None)
Quarter: 2010Q1

REPORT INFORMATION
  Report Type: 
  Country: None (occurrence: None)
  Receive Date: 20100114
  Receipt Date: 20100111
  Transmission Date: 20100710
  Serious: Yes (Hospitalization, Disabling, Other)
  Sender: FDA-Public Use
  Company Number: US-MERCK-0806USA08538

PATIENT
  Age: 55 Year
  Sex: Male

DRUGS (8)
  1. FOSAMAX [Suspect]
     Indication: RHEUMATOID ARTHRITIS
     Route: 048
     Dates: start: 20000801, end: 20010301
  2. FOSAMAX [Suspect]
     Route: 048
     Dates: start: 20011001, end: 20070125
  3. FOSAMAX [Suspect]
     Route: 048
     Dates: start: 20010301, end: 20010501
  4. FOSAMAX [Suspect]
     Route: 048
     Dates: start: 20010501, end: 20011001
  5. FOSAMAX [Suspect]
     Indication: OSTEOPOROSIS
     Route: 048
     Dates: start: 20000801, end: 20010301
  6. FOSAMAX [Suspect]
     Route: 048
     Dates: start: 20011001, end: 20070125
  7. FOSAMAX [Suspect]
     Route: 048
     Dates: start: 20010301, end: 20010501
  8. FOSAMAX [Suspect]
     Route: 048
     Dates: start: 20010501, end: 20011001

REACTIONS (13)
  - ABSCESS [None]
  - ARTHROPATHY [None]
  - CUBITAL TUNNEL SYNDROME [None]
  - INGROWN HAIR [None]
  - ORAL DISORDER [None]
  - ORAL INFECTION [None]
  - OSTEOARTHRITIS [None]
  - OSTEOMYELITIS [None]
  - OSTEONECROSIS [None]
  - PAIN IN JAW [None]
  - RADIUS FRACTURE [None]
  - RHEUMATOID ARTHRITIS [None]
  - UPPER LIMB FRACTURE [None]
